FAERS Safety Report 11870164 (Version 1)
Quarter: 2015Q4

REPORT INFORMATION
  Report Type: Report from Study
  Country: US (occurrence: US)
  Receive Date: 20151228
  Receipt Date: 20151228
  Transmission Date: 20160305
  Serious: No
  Sender: FDA-Public Use
  Company Number: US-BIOGEN-2013BI076755

PATIENT
  Age: 43 Year
  Sex: Female

DRUGS (1)
  1. AVONEX [Suspect]
     Active Substance: INTERFERON BETA-1A
     Indication: RELAPSING-REMITTING MULTIPLE SCLEROSIS
     Route: 030
     Dates: start: 20110621

REACTIONS (5)
  - Feeling abnormal [Not Recovered/Not Resolved]
  - Nightmare [Unknown]
  - Abnormal dreams [Recovered/Resolved]
  - Skin burning sensation [Unknown]
  - Insomnia [Unknown]

NARRATIVE: CASE EVENT DATE: 20130812
